FAERS Safety Report 24991961 (Version 1)
Quarter: 2025Q1

REPORT INFORMATION
  Report Type: Spontaneous
  Country: FR (occurrence: FR)
  Receive Date: 20250220
  Receipt Date: 20250220
  Transmission Date: 20250408
  Serious: Yes (Life-Threatening)
  Sender: AIRGAS
  Company Number: FR-AFSSAPS-AVPA2025000089

PATIENT
  Age: 20 Year
  Sex: Female

DRUGS (3)
  1. NITROUS OXIDE [Suspect]
     Active Substance: NITROUS OXIDE
     Indication: Product used for unknown indication
  2. CARISOPRODOL [Suspect]
     Active Substance: CARISOPRODOL
  3. TAPENTADOL HYDROCHLORIDE [Suspect]
     Active Substance: TAPENTADOL HYDROCHLORIDE

REACTIONS (2)
  - Drug dependence [Recovering/Resolving]
  - Seizure [Recovered/Resolved]
